FAERS Safety Report 21224701 (Version 1)
Quarter: 2022Q3

REPORT INFORMATION
  Report Type: Spontaneous
  Country: US (occurrence: US)
  Receive Date: 20220817
  Receipt Date: 20220817
  Transmission Date: 20221026
  Serious: No
  Sender: FDA-Public Use
  Company Number: US-OTSUKA-2021_032023

PATIENT
  Sex: Female
  Weight: 72.57 kg

DRUGS (2)
  1. ABILIFY [Suspect]
     Active Substance: ARIPIPRAZOLE
     Indication: Bipolar disorder
     Dosage: 5 MG PO QD
     Route: 048
     Dates: start: 2019
  2. ZOLOFT [Concomitant]
     Active Substance: SERTRALINE HYDROCHLORIDE
     Indication: Product used for unknown indication
     Dosage: UNK
     Route: 065

REACTIONS (6)
  - Thinking abnormal [Unknown]
  - Hypoaesthesia [Unknown]
  - Apathy [Unknown]
  - Disturbance in attention [Unknown]
  - Restlessness [Unknown]
  - Insomnia [Unknown]
